FAERS Safety Report 15780787 (Version 1)
Quarter: 2019Q1

REPORT INFORMATION
  Report Type: Spontaneous
  Country: US (occurrence: US)
  Receive Date: 20190102
  Receipt Date: 20190102
  Transmission Date: 20190417
  Serious: No
  Sender: FDA-Public Use
  Company Number: US-BIOGEN-2016BI00304286

PATIENT
  Sex: Female

DRUGS (4)
  1. TYSABRI [Suspect]
     Active Substance: NATALIZUMAB
     Route: 042
     Dates: start: 20110907
  2. TYSABRI [Suspect]
     Active Substance: NATALIZUMAB
     Indication: MULTIPLE SCLEROSIS
     Route: 042
     Dates: start: 20070628, end: 20080104
  3. TYSABRI [Suspect]
     Active Substance: NATALIZUMAB
     Route: 042
     Dates: start: 20080418, end: 20090109
  4. TYSABRI [Suspect]
     Active Substance: NATALIZUMAB
     Route: 042
     Dates: start: 20090521, end: 20101118

REACTIONS (6)
  - Feeling abnormal [Unknown]
  - Multiple sclerosis [Unknown]
  - Memory impairment [Unknown]
  - Skin laceration [Not Recovered/Not Resolved]
  - Localised infection [Not Recovered/Not Resolved]
  - Fracture nonunion [Not Recovered/Not Resolved]

NARRATIVE: CASE EVENT DATE: 2018
